FAERS Safety Report 8913925 (Version 2)
Quarter: 2012Q4

REPORT INFORMATION
  Report Type: Spontaneous
  Country: US (occurrence: None)
  Receive Date: 20121114
  Receipt Date: 20121120
  Transmission Date: 20130627
  Serious: Yes (Death, Other)
  Sender: FDA-Public Use
  Company Number: 2012SGN00494

PATIENT
  Age: 72 Year
  Sex: Female

DRUGS (1)
  1. ADCETRIS (BRENTUXIMAB VEDOTIN) INJECTION [Suspect]
     Indication: MYCOSIS FUNGOIDES

REACTIONS (8)
  - Disorientation [None]
  - Amnesia [None]
  - Lymphopenia [None]
  - Amnesia [None]
  - Asthenia [None]
  - Neutropenia [None]
  - JC virus test positive [None]
  - Anaemia [None]
